FAERS Safety Report 5079313-9 (Version None)
Quarter: 2006Q3

REPORT INFORMATION
  Report Type: 
  Country: None (occurrence: None)
  Receive Date: 20060814
  Receipt Date: 20060628
  Transmission Date: 20061208
  Serious: Yes (Hospitalization)
  Sender: FDA-Public Use
  Company Number: 2006AP02988

PATIENT
  Age: 76 Year
  Sex: Male
  Weight: 49 kg

DRUGS (5)
  1. SYMBICORT TURBUHALER [Suspect]
     Indication: ASTHMA
     Dosage: 160/4.5 TWO INHALATIONS BID
     Route: 055
     Dates: start: 20060308, end: 20060528
  2. SYMBICORT TURBUHALER [Suspect]
     Dosage: 160/4.5 ONE INHALATION BID
     Route: 055
     Dates: start: 20060529, end: 20060627
  3. SYMBICORT TURBUHALER [Suspect]
     Dosage: 160/4.5 TWO INHALATIONS BID
     Route: 055
     Dates: start: 20060628, end: 20060706
  4. TAMSULOSIN HYDROCHLORIDE [Concomitant]
     Route: 048
     Dates: start: 20030210
  5. ALBUTEROL [Concomitant]
     Indication: ASTHMA
     Route: 055
     Dates: start: 20060222

REACTIONS (1)
  - CRYPTOGENIC ORGANISING PNEUMONIA [None]
